FAERS Safety Report 24352053 (Version 1)
Quarter: 2024Q3

REPORT INFORMATION
  Report Type: Report from Study
  Country: AT (occurrence: AT)
  Receive Date: 20240923
  Receipt Date: 20240923
  Transmission Date: 20241017
  Serious: No
  Sender: ROCHE
  Company Number: AT-ROCHE-3193213

PATIENT
  Age: 74 Year
  Sex: Female
  Weight: 53.0 kg

DRUGS (30)
  1. HERCEPTIN [Suspect]
     Active Substance: TRASTUZUMAB
     Indication: HER2 positive breast cancer
     Dosage: MOST RECENT DOSE PRIOR TO THE EVENT:27/FEB/2020
     Route: 042
     Dates: start: 20160629, end: 20180621
  2. XELODA [Suspect]
     Active Substance: CAPECITABINE
     Indication: HER2 positive breast cancer
     Dosage: MOST RECENT DOSE PRIOR TO THE EVENT: FEB/2022? FREQUENCY TEXT:OTHER
     Route: 048
     Dates: start: 20211025, end: 202201
  3. PERJETA [Suspect]
     Active Substance: PERTUZUMAB
     Indication: HER2 positive breast cancer
     Dosage: MOST RECENT DOSE PRIOR TO THE EVENT:27/FEB/2020
     Route: 042
     Dates: start: 20160629, end: 20180601
  4. FASLODEX [Suspect]
     Active Substance: FULVESTRANT
     Indication: HER2 positive breast cancer
     Dosage: MOST RECENT DOSE RECEIVED ON OCT/2021
     Route: 030
     Dates: start: 20200716
  5. PALBOCICLIB [Suspect]
     Active Substance: PALBOCICLIB
     Indication: HER2 positive breast cancer
     Dosage: MOST RECENT DOSE PRIOR TO THE EVENT: DEC/2020? FREQUENCY TEXT:OTHER
     Route: 048
     Dates: start: 202011, end: 202012
  6. RIBOCICLIB [Suspect]
     Active Substance: RIBOCICLIB
     Indication: HER2 positive breast cancer
     Dosage: MOST RECENT DOSE PRIOR TO THE EVENT: 24/AUG/2020? FREQUENCY TEXT:OTHER
     Route: 048
     Dates: start: 20200716, end: 202008
  7. TAXOTERE [Suspect]
     Active Substance: DOCETAXEL
     Indication: HER2 positive breast cancer
     Dosage: MOST RECENT DOSE RECEIVED ON 01/SEP/2016
     Route: 042
     Dates: start: 20160629
  8. FEMARA [Suspect]
     Active Substance: LETROZOLE
     Indication: HER2 positive breast cancer
     Dosage: MOST RECENT DOSE RECEIVED ON 29/JUN/2020
     Route: 048
     Dates: start: 20161021
  9. XGEVA [Suspect]
     Active Substance: DENOSUMAB
     Indication: HER2 positive breast cancer
     Dosage: MOST RECENT DOSE RECEIVED ON /JAN/2021
     Route: 058
     Dates: start: 20161121
  10. FAM-TRASTUZUMAB DERUXTECAN-NXKI [Suspect]
     Active Substance: FAM-TRASTUZUMAB DERUXTECAN-NXKI
     Indication: HER2 positive breast cancer
     Dosage: MOST RECENT DOSE PRIOR TO THE EVENT: 23/AUG/2022
     Route: 042
     Dates: start: 20220823, end: 20220823
  11. NEBIVOLOL HYDROCHLORIDE [Concomitant]
     Active Substance: NEBIVOLOL HYDROCHLORIDE
     Dosage: ONGOING = CHECKED
     Dates: start: 20170115
  12. DIPRODERM (AUSTRIA) [Concomitant]
     Indication: Rash
     Dates: start: 20180621
  13. DIPRODERM (AUSTRIA) [Concomitant]
     Indication: Hypersensitivity
  14. METHYLPREDNISOLONE ACEPONATE [Concomitant]
     Active Substance: METHYLPREDNISOLONE ACEPONATE
     Indication: Palmar-plantar erythrodysaesthesia syndrome
     Dates: start: 20201111
  15. BETAISODONA [Concomitant]
     Active Substance: POVIDONE-IODINE
     Indication: Paronychia
     Dosage: ONGOING = CHECKED
     Dates: start: 20201111
  16. EUTHYROX [Concomitant]
     Active Substance: LEVOTHYROXINE SODIUM
     Dosage: ONGOING = CHECKED
     Dates: start: 20210223
  17. AMOXICILLIN\CLAVULANATE POTASSIUM [Concomitant]
     Active Substance: AMOXICILLIN\CLAVULANATE POTASSIUM
     Indication: Osteonecrosis of jaw
     Dosage: ONGOING = CHECKED
     Dates: start: 20210915
  18. HYDROMORPHONE HYDROCHLORIDE [Concomitant]
     Active Substance: HYDROMORPHONE HYDROCHLORIDE
     Indication: Pain
     Dates: start: 20210915
  19. HYDROMORPHONE HYDROCHLORIDE [Concomitant]
     Active Substance: HYDROMORPHONE HYDROCHLORIDE
     Dates: start: 20210915
  20. NOVALGIN (AUSTRIA) [Concomitant]
     Indication: Osteonecrosis of jaw
     Dates: start: 20210915
  21. NOVALGIN (AUSTRIA) [Concomitant]
     Indication: Pain
     Dates: start: 20220722
  22. PANTOPRAZOLE SODIUM [Concomitant]
     Active Substance: PANTOPRAZOLE SODIUM
     Indication: Gastritis
     Dates: start: 20211115
  23. TRAMADOL [Concomitant]
     Active Substance: TRAMADOL\TRAMADOL HYDROCHLORIDE
     Indication: Contusion
     Dosage: ONGOING = CHECKED
     Dates: start: 20220615
  24. APREPITANT [Concomitant]
     Active Substance: APREPITANT
     Dates: start: 20220823
  25. APREPITANT [Concomitant]
     Active Substance: APREPITANT
     Dosage: 75 MG/M2, ONCE EVERY 3 WK
     Dates: start: 20220824
  26. DEXAMETHASONE [Concomitant]
     Active Substance: DEXAMETHASONE
     Dosage: ONGOING = CHECKED
     Dates: start: 20220823
  27. ONDANSETRON [Concomitant]
     Active Substance: ONDANSETRON
     Dates: start: 20220823
  28. ONDANSETRON [Concomitant]
     Active Substance: ONDANSETRON
     Dates: start: 20220916
  29. LOPERAMIDE HYDROCHLORIDE [Concomitant]
     Active Substance: LOPERAMIDE HYDROCHLORIDE
     Dates: start: 20220902
  30. KALIORAL (AUSTRIA) [Concomitant]
     Indication: Diarrhoea
     Dates: start: 20220902

REACTIONS (3)
  - Vomiting [Recovered/Resolved]
  - Diarrhoea [Recovered/Resolved]
  - Nausea [Recovered/Resolved]

NARRATIVE: CASE EVENT DATE: 20220827
